FAERS Safety Report 16285799 (Version 8)
Quarter: 2019Q4

REPORT INFORMATION
  Report Type: Report from Study
  Country: CA (occurrence: CA)
  Receive Date: 20190508
  Receipt Date: 20191112
  Transmission Date: 20200122
  Serious: Yes (Hospitalization, Other)
  Sender: FDA-Public Use
  Company Number: CA-B.I. PHARMACEUTICALS,INC./RIDGEFIELD-2018-BI-027608

PATIENT
  Age: 71 Year
  Sex: Male

DRUGS (3)
  1. OFEV [Suspect]
     Active Substance: NINTEDANIB
     Indication: IDIOPATHIC PULMONARY FIBROSIS
     Route: 048
     Dates: start: 20180424
  2. OFEV [Suspect]
     Active Substance: NINTEDANIB
     Route: 048
  3. OFEV [Suspect]
     Active Substance: NINTEDANIB
     Dosage: OFEV 100MG AM + 150 MG PM
     Route: 048

REACTIONS (18)
  - Myocardial infarction [Recovered/Resolved]
  - Diarrhoea [Recovered/Resolved]
  - Fatigue [Not Recovered/Not Resolved]
  - Nausea [Recovered/Resolved]
  - Arrhythmia [Recovered/Resolved]
  - Anger [Unknown]
  - Palpitations [Recovered/Resolved]
  - Gastrointestinal disorder [Not Recovered/Not Resolved]
  - Palpitations [Not Recovered/Not Resolved]
  - Chest pain [Not Recovered/Not Resolved]
  - Arteriosclerosis coronary artery [Unknown]
  - Abdominal pain upper [Recovered/Resolved]
  - Cardiac disorder [Recovered/Resolved]
  - Stent placement [Recovered/Resolved]
  - Faeces soft [Not Recovered/Not Resolved]
  - Abdominal pain [Recovered/Resolved]
  - Intentional product misuse [Recovered/Resolved]
  - Chest discomfort [Not Recovered/Not Resolved]

NARRATIVE: CASE EVENT DATE: 201901
